FAERS Safety Report 8852994 (Version 1)
Quarter: 2012Q4

REPORT INFORMATION
  Report Type: 
  Country: US (occurrence: US)
  Receive Date: 20121022
  Receipt Date: 20121022
  Transmission Date: 20130627
  Serious: Yes (Hospitalization, Other)
  Sender: FDA-Public Use
  Company Number: US-ABBOTT-12P-163-0994841-00

PATIENT
  Sex: Female
  Weight: 63.56 kg

DRUGS (2)
  1. DEPAKOTE ER [Suspect]
     Indication: CONVULSION
     Dosage: Two tab in the morning and three tab at night
     Dates: start: 2000, end: 201110
  2. VITAMINS [Concomitant]
     Indication: PRODUCT USED FOR UNKNOWN INDICATION

REACTIONS (6)
  - Breast cancer [Recovered/Resolved]
  - Muscular weakness [Not Recovered/Not Resolved]
  - Cataract [Recovered/Resolved]
  - Breast mass [Recovered/Resolved]
  - Tremor [Recovered/Resolved]
  - Paraesthesia [Not Recovered/Not Resolved]
